FAERS Safety Report 4736047-5 (Version None)
Quarter: 2005Q3

REPORT INFORMATION
  Report Type: 
  Country: None (occurrence: None)
  Receive Date: 20050805
  Receipt Date: 20041005
  Transmission Date: 20060218
  Serious: Yes (Hospitalization)
  Sender: FDA-Public Use
  Company Number: US-MERCK-0410USA00688

PATIENT
  Age: 73 Year
  Sex: Female
  Weight: 110 kg

DRUGS (3)
  1. VIOXX [Suspect]
     Indication: ARTHROSCOPIC SURGERY
     Route: 048
     Dates: start: 19991001
  2. VIOXX [Suspect]
     Indication: MONARTHRITIS
     Route: 048
     Dates: start: 19991001
  3. SYNTHROID [Concomitant]
     Route: 065

REACTIONS (2)
  - ATRIAL FIBRILLATION [None]
  - CEREBROVASCULAR ACCIDENT [None]
